FAERS Safety Report 10147210 (Version 2)
Quarter: 2014Q2

REPORT INFORMATION
  Report Type: Report from Study
  Country: US (occurrence: US)
  Receive Date: 20140501
  Receipt Date: 20140501
  Transmission Date: 20141212
  Serious: Yes (Hospitalization)
  Sender: FDA-Public Use
  Company Number: US-CELGENEUS-163-10004-12040378

PATIENT
  Age: 56 Year
  Sex: Male
  Weight: 106.69 kg

DRUGS (7)
  1. CC-10004 [Suspect]
     Indication: PSORIASIS
     Dosage: 60 MILLIGRAM
     Route: 048
     Dates: start: 20110920
  2. CC-10004 [Suspect]
     Dosage: 60 MILLIGRAM
     Route: 048
     Dates: start: 20120208, end: 20120221
  3. PERCOCET [Concomitant]
     Indication: PAIN
     Route: 048
     Dates: start: 20120322, end: 20120509
  4. OXYCODONE [Concomitant]
     Indication: PAIN
     Route: 065
  5. OXYCODONE/APAP [Concomitant]
     Indication: PRODUCT USED FOR UNKNOWN INDICATION
     Route: 065
  6. 5-FU [Concomitant]
     Indication: PRODUCT USED FOR UNKNOWN INDICATION
     Route: 065
  7. OXALIPLATIN [Concomitant]
     Indication: PRODUCT USED FOR UNKNOWN INDICATION
     Route: 065

REACTIONS (1)
  - Rectosigmoid cancer [Recovered/Resolved]
